FAERS Safety Report 7817492-8 (Version None)
Quarter: 2011Q4

REPORT INFORMATION
  Report Type: 
  Country: None (occurrence: None)
  Receive Date: 20111017
  Receipt Date: 20111003
  Transmission Date: 20120403
  Serious: Yes (Hospitalization, Other)
  Sender: FDA-Public Use
  Company Number: US-ROCHE-798115

PATIENT
  Sex: Male

DRUGS (3)
  1. BACTRIM [Concomitant]
  2. AVASTIN [Suspect]
     Indication: HEPATIC NEOPLASM MALIGNANT
     Route: 042
     Dates: start: 20110501, end: 20110701
  3. TARCEVA [Suspect]
     Indication: HEPATIC NEOPLASM MALIGNANT
     Dosage: FREQUENCY: QD
     Route: 048
     Dates: start: 20110510, end: 20110725

REACTIONS (10)
  - SKIN EXFOLIATION [None]
  - DRY SKIN [None]
  - DERMATITIS ACNEIFORM [None]
  - GASTRITIS [None]
  - NOSOCOMIAL INFECTION [None]
  - SKIN TOXICITY [None]
  - EOSINOPHILIC OESOPHAGITIS [None]
  - MUCOSAL INFLAMMATION [None]
  - OESOPHAGEAL ULCER [None]
  - CHEST PAIN [None]
